FAERS Safety Report 5126491-9 (Version None)
Quarter: 2006Q4

REPORT INFORMATION
  Report Type: 
  Country: None (occurrence: None)
  Receive Date: 20061010
  Receipt Date: 20060927
  Transmission Date: 20070319
  Serious: Yes (Death)
  Sender: FDA-Public Use
  Company Number: 06H-163-0310516-00

PATIENT
  Age: 43 Year
  Sex: Female

DRUGS (5)
  1. DIAZEPAM [Suspect]
     Indication: DRUG USE FOR UNKNOWN INDICATION
  2. BENZOYLECOGNINE (COCAINE) [Suspect]
     Indication: DRUG USE FOR UNKNOWN INDICATION
  3. OXYCODONE HCL [Suspect]
     Indication: DRUG USE FOR UNKNOWN INDICATION
  4. PAROXETINE [Suspect]
     Indication: DRUG USE FOR UNKNOWN INDICATION
  5. QUETIAPINE FUMARATE [Suspect]
     Indication: DRUG USE FOR UNKNOWN INDICATION

REACTIONS (6)
  - AORTIC ARTERIOSCLEROSIS [None]
  - FALL [None]
  - HEPATIC CONGESTION [None]
  - MULTIPLE DRUG OVERDOSE [None]
  - PLEURAL ADHESION [None]
  - PULMONARY CONGESTION [None]
